FAERS Safety Report 15707450 (Version 1)
Quarter: 2018Q4

REPORT INFORMATION
  Report Type: Spontaneous
  Country: US (occurrence: US)
  Receive Date: 20181127
  Receipt Date: 20181127
  Transmission Date: 20190205
  Serious: Yes (Hospitalization)
  Sender: FDA-Public Use
  Company Number: None

PATIENT
  Age: 71 Year
  Sex: Female
  Weight: 74.4 kg

DRUGS (1)
  1. AZACITIDINE. [Suspect]
     Active Substance: AZACITIDINE
     Dates: end: 20181023

REACTIONS (17)
  - Platelet transfusion [None]
  - Blood culture positive [None]
  - Troponin increased [None]
  - Ejection fraction decreased [None]
  - Dyspnoea [None]
  - Packed red blood cell transfusion [None]
  - Pyrexia [None]
  - Hypotension [None]
  - Bacterial infection [None]
  - Unresponsive to stimuli [None]
  - Haemoglobin decreased [None]
  - Tachycardia [None]
  - Neutrophil count decreased [None]
  - Pericardial effusion [None]
  - Haemodynamic instability [None]
  - Seizure [None]
  - Fatigue [None]

NARRATIVE: CASE EVENT DATE: 20181120
